FAERS Safety Report 25190509 (Version 1)
Quarter: 2025Q2

REPORT INFORMATION
  Report Type: Spontaneous
  Country: US (occurrence: US)
  Receive Date: 20250411
  Receipt Date: 20250411
  Transmission Date: 20250717
  Serious: Yes (Other)
  Sender: LUNDBECK
  Company Number: US-LUNDBECK-DKLU4013002

PATIENT
  Age: 18 Year
  Sex: Male

DRUGS (2)
  1. SABRIL [Suspect]
     Active Substance: VIGABATRIN
     Indication: Generalised tonic-clonic seizure
     Dosage: 7 MILLILITRE
     Route: 048
     Dates: start: 201708
  2. SABRIL [Suspect]
     Active Substance: VIGABATRIN
     Indication: Status epilepticus

REACTIONS (2)
  - Drug withdrawal convulsions [Unknown]
  - Product dose omission issue [Unknown]
